FAERS Safety Report 5946902-6 (Version None)
Quarter: 2008Q4

REPORT INFORMATION
  Report Type: 
  Country: None (occurrence: None)
  Receive Date: 20081107
  Receipt Date: 20081107
  Transmission Date: 20090506
  Serious: Yes (Other)
  Sender: FDA-Public Use
  Company Number: None

PATIENT
  Age: 69 Year
  Sex: Female
  Weight: 130 kg

DRUGS (1)
  1. VANCOMYCIN [Suspect]
     Indication: CELLULITIS
     Dosage: 1000 MG EVERY 12 HOURS IV
     Route: 042
     Dates: start: 20080825, end: 20080827

REACTIONS (2)
  - RENAL TUBULAR NECROSIS [None]
  - SEPSIS [None]
